FAERS Safety Report 20933219 (Version 6)
Quarter: 2022Q3

REPORT INFORMATION
  Report Type: Report from Study
  Country: US (occurrence: US)
  Receive Date: 20220608
  Receipt Date: 20220903
  Transmission Date: 20221027
  Serious: No
  Sender: FDA-Public Use
  Company Number: US-NOVARTISTESTPH-NVSC2022US131358

PATIENT
  Sex: Female

DRUGS (1)
  1. KESIMPTA [Suspect]
     Active Substance: OFATUMUMAB
     Indication: Relapsing multiple sclerosis
     Dosage: UNK , QW
     Route: 058
     Dates: start: 20220428

REACTIONS (12)
  - Pain [Recovered/Resolved]
  - Disturbance in attention [Unknown]
  - Memory impairment [Unknown]
  - Visual impairment [Unknown]
  - Hyperhidrosis [Unknown]
  - Dysarthria [Unknown]
  - Euphoric mood [Unknown]
  - Irritability [Not Recovered/Not Resolved]
  - Influenza like illness [Recovered/Resolved]
  - Fatigue [Unknown]
  - Asthenia [Unknown]
  - Insomnia [Unknown]
